FAERS Safety Report 5142045-2 (Version None)
Quarter: 2006Q4

REPORT INFORMATION
  Report Type: 
  Country: None (occurrence: None)
  Receive Date: 20061030
  Receipt Date: 20061030
  Transmission Date: 20070319
  Serious: Yes (Hospitalization)
  Sender: FDA-Public Use
  Company Number: None

PATIENT
  Sex: Female
  Weight: 61.2 kg

DRUGS (18)
  1. CETUXIMAB, 250 MG/ M2, BRISTOL MYERS SQUIBB [Suspect]
     Indication: CERVIX CARCINOMA
     Dosage: 680 MG DAY 1 IV
     Route: 042
     Dates: start: 20060707
  2. CETUXIMAB 250 MG/M2 BRISTOL MYERS SQUIBB [Suspect]
     Indication: CERVIX CARCINOMA
     Dosage: 425 MG WEEKLY IV
     Route: 042
     Dates: start: 20060713
  3. CETUXIMAB 250 MG/M2 BRISTOL MYERS SQUIBB [Suspect]
     Indication: CERVIX CARCINOMA
     Dosage: 425 MG WEEKLY IV
     Route: 042
     Dates: start: 20060720
  4. CETUXIMAB 250 MG/M2 BRISTOL MYERS SQUIBB [Suspect]
     Indication: CERVIX CARCINOMA
     Dosage: 425 MG WEEKLY IV
     Route: 042
     Dates: start: 20060803
  5. CETUXIMAB 250 MG/M2 BRISTOL MYERS SQUIBB [Suspect]
     Indication: CERVIX CARCINOMA
     Dosage: 425 MG WEEKLY IV
     Route: 042
     Dates: start: 20060824
  6. TINCTURE OF OPIUM [Concomitant]
  7. SIMETHICONE [Concomitant]
  8. CLONAZEPAM [Concomitant]
  9. ATROPINE AND DIPHENOXYLATE [Concomitant]
  10. FAMOTIDINE [Concomitant]
  11. LOPERAMIDE [Concomitant]
  12. MIRTAZAPINE [Concomitant]
  13. ENSURE [Concomitant]
  14. VENLAFAXIINE HCL [Concomitant]
  15. LEVOTHYROXINE SODIUM [Concomitant]
  16. PROCHLORPERAZINE [Concomitant]
  17. LORAZEPAM [Concomitant]
  18. TIOTROPIUM [Concomitant]

REACTIONS (7)
  - BILIARY DILATATION [None]
  - COMPUTERISED TOMOGRAM ABNORMAL [None]
  - DEEP VEIN THROMBOSIS [None]
  - ENTERITIS [None]
  - GASTROINTESTINAL DISORDER [None]
  - HYPOKALAEMIA [None]
  - NAUSEA [None]
